FAERS Safety Report 5568671-4 (Version None)
Quarter: 2007Q4

REPORT INFORMATION
  Report Type: 
  Country: None (occurrence: None)
  Receive Date: 20071220
  Receipt Date: 20071214
  Transmission Date: 20080405
  Serious: Yes (Other)
  Sender: FDA-Public Use
  Company Number: US-BAYER-US-2007-013390

PATIENT
  Age: 39 Year
  Sex: Female
  Weight: 71 kg

DRUGS (6)
  1. MIRENA [Suspect]
     Indication: CONTRACEPTION
     Route: 015
     Dates: start: 20070315, end: 20070430
  2. CYTOMEL [Concomitant]
  3. LEVOTHYROXINE SODIUM [Concomitant]
  4. GLUCOPHAGE [Concomitant]
     Dosage: UNIT DOSE: 1500 MG
  5. PROZAC [Concomitant]
     Dosage: UNIT DOSE: 10 MG
  6. WELLBUTRIN - SLOW RELEASE [Concomitant]
     Dosage: UNIT DOSE: 150 MG

REACTIONS (2)
  - IUCD COMPLICATION [None]
  - UTERINE PERFORATION [None]
